FAERS Safety Report 25728108 (Version 8)
Quarter: 2025Q4

REPORT INFORMATION
  Report Type: Report from Study
  Country: BR (occurrence: BR)
  Receive Date: 20250826
  Receipt Date: 20251117
  Transmission Date: 20260118
  Serious: Yes (Hospitalization, Other)
  Sender: NOVARTIS
  Company Number: BR-002147023-NVSC2025BR133471

PATIENT
  Age: 68 Year
  Sex: Female
  Weight: 93 kg

DRUGS (27)
  1. KISQALI [Suspect]
     Active Substance: RIBOCICLIB SUCCINATE
     Indication: Breast cancer
     Dosage: 3 DOSAGE FORM, QD (SEP-2021 OR 2022)
     Route: 048
  2. KISQALI [Suspect]
     Active Substance: RIBOCICLIB SUCCINATE
     Indication: Breast cancer metastatic
     Dosage: 3 DOSAGE FORM (3 DOSAGE FORM (PER 21 DAYS) (EXPIRY DATE MAY 2024))
     Route: 065
     Dates: start: 20220929
  3. KISQALI [Suspect]
     Active Substance: RIBOCICLIB SUCCINATE
     Dosage: 200 MG (2023)
     Route: 065
  4. KISQALI [Suspect]
     Active Substance: RIBOCICLIB SUCCINATE
     Dosage: UNK
     Route: 065
  5. KISQALI [Suspect]
     Active Substance: RIBOCICLIB SUCCINATE
     Dosage: 3 DOSAGE FORM (3 DOSAGE FORM (PER 21 DAYS) (EXPIRY DATE MAY 2024))
     Route: 065
     Dates: start: 20220929
  6. KISQALI [Suspect]
     Active Substance: RIBOCICLIB SUCCINATE
     Dosage: 3 DOSAGE FORM, QD (TAKE 03 TABLETS 200 MG PER DAY (DAILY DOSE 600 MG) (DAYS OF TREATMENT: C12/D1- 18
     Route: 048
  7. KISQALI [Suspect]
     Active Substance: RIBOCICLIB SUCCINATE
     Dosage: 3 DOSAGE FORM, QD (3 DAILY  TABLETS,  WITH 21 RUNNING (AS  REPORTED))
     Route: 048
  8. KISQALI [Suspect]
     Active Substance: RIBOCICLIB SUCCINATE
     Dosage: UNK
     Route: 065
     Dates: start: 20240606
  9. KISQALI [Suspect]
     Active Substance: RIBOCICLIB SUCCINATE
     Dosage: UNK
     Route: 048
  10. KISQALI [Suspect]
     Active Substance: RIBOCICLIB SUCCINATE
     Dosage: 200 MG, OTHER (TAKE 3 TABLETS, BY  ORAL ROUTE, FOR 21 DAYS AND PAUSE 7 DAYS)
     Route: 048
  11. KISQALI [Suspect]
     Active Substance: RIBOCICLIB SUCCINATE
     Dosage: UNK (START DATE: 27 SEP)
     Route: 048
  12. KISQALI [Suspect]
     Active Substance: RIBOCICLIB SUCCINATE
     Dosage: 3 DOSAGE FORM, QD (3 TABLETS)
     Route: 048
     Dates: start: 20241122
  13. KISQALI [Suspect]
     Active Substance: RIBOCICLIB SUCCINATE
     Dosage: UNK
     Route: 065
  14. KISQALI [Suspect]
     Active Substance: RIBOCICLIB SUCCINATE
     Dosage: 3 DOSAGE FORM (NEW CYCLE ON 02 AUG, 07:30AM)
     Route: 065
  15. KISQALI [Suspect]
     Active Substance: RIBOCICLIB SUCCINATE
     Dosage: UNK
     Route: 065
  16. KISQALI [Suspect]
     Active Substance: RIBOCICLIB SUCCINATE
     Dosage: UNK (STARTED ON 30 AUG)
     Route: 065
  17. KISQALI [Suspect]
     Active Substance: RIBOCICLIB SUCCINATE
     Dosage: 3 DOSAGE FORM, QD
     Route: 048
  18. LOSARTAN [Suspect]
     Active Substance: LOSARTAN
     Indication: Blood pressure abnormal
     Dosage: 50 MG, QD (MANY YEARS AGO)
     Route: 048
  19. ANASTROZOLE [Suspect]
     Active Substance: ANASTROZOLE
     Indication: Prophylaxis
     Dosage: UNK (20)
     Route: 065
  20. ANASTROZOLE [Suspect]
     Active Substance: ANASTROZOLE
     Indication: Breast cancer
     Dosage: 1 DOSAGE FORM, QD (QUANTITY 30 TABLET) (DAYS OF TREATMENT: C12/D1 - 18 AUG 2023 (TAKE ONE TABLET PER
     Route: 048
  21. ANASTROZOLE [Suspect]
     Active Substance: ANASTROZOLE
     Dosage: 1 DOSAGE FORM, QD (TABLET IN THE MORNING, AT 06:00AM)
     Route: 048
  22. HYDROCHLOROTHIAZIDE [Suspect]
     Active Substance: HYDROCHLOROTHIAZIDE
     Indication: Blood pressure abnormal
     Dosage: UNK
     Route: 065
  23. CAFFEINE\ISOMETHEPTENE\METHIMAZOLE [Concomitant]
     Active Substance: CAFFEINE\ISOMETHEPTENE\METHIMAZOLE
     Indication: Product used for unknown indication
     Dosage: UNK
     Route: 065
  24. CARVEDILOL [Concomitant]
     Active Substance: CARVEDILOL
     Indication: Cardiac disorder
     Dosage: 1 DOSAGE FORM, QD (1 TABLET - 1 X DAY)
     Route: 048
  25. FUROSEMIDE [Concomitant]
     Active Substance: FUROSEMIDE
     Indication: Diuretic therapy
     Dosage: 40 MG, QD (MANY YEARS AGO) (1 TABLET - 1  X DAY)
     Route: 048
  26. SPIRONOLACTONE [Concomitant]
     Active Substance: SPIRONOLACTONE
     Indication: Cardiac disorder
     Dosage: 25 MG, QD (1 TABLET - 1  X DAY, MANY  YEARS AGO)
     Route: 048
  27. ANASTROZOLE [Concomitant]
     Active Substance: ANASTROZOLE
     Indication: Product used for unknown indication
     Dosage: UNK
     Route: 065

REACTIONS (68)
  - Pulmonary oedema [Unknown]
  - COVID-19 [Unknown]
  - Pleural effusion [Unknown]
  - Arrhythmia [Recovering/Resolving]
  - Cardiac failure [Recovered/Resolved]
  - Cardiac failure [Not Recovered/Not Resolved]
  - Cataract [Not Recovered/Not Resolved]
  - Visual impairment [Not Recovered/Not Resolved]
  - Hypersensitivity [Recovered/Resolved]
  - Illness [Unknown]
  - Sluggishness [Recovered/Resolved]
  - Pollakiuria [Unknown]
  - Pain [Recovered/Resolved]
  - Abdominal discomfort [Recovered/Resolved]
  - Gastrooesophageal reflux disease [Unknown]
  - Abdominal distension [Recovering/Resolving]
  - Dyspepsia [Recovering/Resolving]
  - Urinary tract infection [Recovered/Resolved]
  - Dry skin [Recovered/Resolved]
  - Abdominal pain [Unknown]
  - Alopecia [Not Recovered/Not Resolved]
  - Headache [Recovered/Resolved]
  - Asthenia [Unknown]
  - Influenza [Recovered/Resolved]
  - Hypertension [Unknown]
  - Constipation [Recovered/Resolved]
  - Migraine [Not Recovered/Not Resolved]
  - Vomiting [Unknown]
  - Speech disorder [Unknown]
  - Osteoarthritis [Unknown]
  - Cough [Unknown]
  - Hypersensitivity [Unknown]
  - Vitiligo [Not Recovered/Not Resolved]
  - Skin disorder [Unknown]
  - Photosensitivity reaction [Not Recovered/Not Resolved]
  - Cardiomegaly [Unknown]
  - Hypotension [Recovered/Resolved]
  - Blood pressure increased [Recovered/Resolved]
  - Blood pressure abnormal [Recovered/Resolved]
  - Pigmentation disorder [Not Recovered/Not Resolved]
  - Gait disturbance [Recovering/Resolving]
  - Dengue fever [Recovering/Resolving]
  - Platelet count decreased [Unknown]
  - Oesophageal disorder [Unknown]
  - Eating disorder [Unknown]
  - Confusional state [Unknown]
  - Feeding disorder [Unknown]
  - Rash macular [Unknown]
  - Anaemia [Unknown]
  - Influenza [Unknown]
  - Dermatitis allergic [Recovered/Resolved]
  - Skin discolouration [Not Recovered/Not Resolved]
  - Skin exfoliation [Recovered/Resolved]
  - Sensitive skin [Unknown]
  - Mouth ulceration [Recovered/Resolved]
  - Pain [Not Recovered/Not Resolved]
  - Musculoskeletal chest pain [Recovered/Resolved]
  - Wrist fracture [Recovering/Resolving]
  - Pain in extremity [Unknown]
  - Therapeutic response unexpected [Unknown]
  - Fall [Recovering/Resolving]
  - Concomitant disease aggravated [Not Recovered/Not Resolved]
  - Mouth ulceration [Recovering/Resolving]
  - Cholelithiasis [Not Recovered/Not Resolved]
  - Inappropriate schedule of product administration [Not Recovered/Not Resolved]
  - Lip dry [Not Recovered/Not Resolved]
  - Lip exfoliation [Not Recovered/Not Resolved]
  - Memory impairment [Unknown]

NARRATIVE: CASE EVENT DATE: 20220929
